FAERS Safety Report 16392297 (Version 1)
Quarter: 2019Q2

REPORT INFORMATION
  Report Type: Spontaneous
  Country: US (occurrence: US)
  Receive Date: 20190605
  Receipt Date: 20190605
  Transmission Date: 20190711
  Serious: No
  Sender: FDA-Public Use
  Company Number: US-ROCHE-2280022

PATIENT
  Sex: Female
  Weight: 65.83 kg

DRUGS (4)
  1. OCREVUS [Suspect]
     Active Substance: OCRELIZUMAB
     Indication: PRIMARY PROGRESSIVE MULTIPLE SCLEROSIS
     Dosage: ^HALF DOSE^ GIVEN 2 WEEKS APART
     Route: 042
     Dates: start: 2017, end: 2017
  2. OCREVUS [Suspect]
     Active Substance: OCRELIZUMAB
     Dosage: ^FULL DOSE^ EVERY 6 MONTHS ;ONGOING: YES
     Route: 042
     Dates: start: 2018
  3. QUETIAPINE. [Concomitant]
     Active Substance: QUETIAPINE
  4. DEXTROAMPHET SACCHARAT, AMPHET ASPARTATE, DEXTROAMPHET SULFATE AND AMPHET SULFAT [Concomitant]
     Active Substance: AMPHETAMINE ASPARTATE\AMPHETAMINE SULFATE\DEXTROAMPHETAMINE SACCHARATE\DEXTROAMPHETAMINE SULFATE

REACTIONS (1)
  - Gait disturbance [Not Recovered/Not Resolved]
